FAERS Safety Report 9161250 (Version 1)
Quarter: 2013Q1

REPORT INFORMATION
  Report Type: Report from Study
  Country: US (occurrence: US)
  Receive Date: 20130313
  Receipt Date: 20130313
  Transmission Date: 20140127
  Serious: Yes (Hospitalization)
  Sender: FDA-Public Use
  Company Number: US-GLAXOSMITHKLINE-Z0001920A

PATIENT
  Age: 61 Year
  Sex: Female
  Weight: 60 kg

DRUGS (17)
  1. PLACEBO [Suspect]
     Indication: OVARIAN CANCER
     Route: 048
     Dates: start: 20090918
  2. PAZOPANIB [Suspect]
     Indication: OVARIAN CANCER
     Dosage: 800MG PER DAY
     Route: 048
     Dates: start: 20090918
  3. FOSAMAX [Concomitant]
  4. VITAMIN B6 [Concomitant]
  5. NEURONTIN [Concomitant]
  6. ATIVAN [Concomitant]
  7. CALCIUM [Concomitant]
  8. MELATONIN [Concomitant]
  9. CINNAMON [Concomitant]
  10. VITAMIN D [Concomitant]
  11. FISH OIL [Concomitant]
  12. CURCUMIN [Concomitant]
  13. L-GLUTAMINE [Concomitant]
  14. MULTIVITAMIN [Concomitant]
  15. OPTISEL [Concomitant]
  16. PROBIOTIC [Concomitant]
  17. RESVERATROL [Concomitant]

REACTIONS (1)
  - Small intestinal obstruction [Recovered/Resolved]
